FAERS Safety Report 8340181-0 (Version None)
Quarter: 2012Q2

REPORT INFORMATION
  Report Type: 
  Country: None (occurrence: None)
  Receive Date: 20120507
  Receipt Date: 20120202
  Transmission Date: 20120825
  Serious: No
  Sender: FDA-Public Use
  Company Number: US-ASTRAZENECA-2012SE07517

PATIENT
  Sex: Female

DRUGS (2)
  1. VIMOVO [Suspect]
     Indication: ARTHRALGIA
     Dosage: 500/20 MG
     Route: 048
     Dates: start: 20120201
  2. VIMOVO [Suspect]
     Indication: MUSCLE DISORDER
     Dosage: 500/20 MG
     Route: 048
     Dates: start: 20120201

REACTIONS (2)
  - REACTION TO DRUG EXCIPIENTS [None]
  - OFF LABEL USE [None]
